FAERS Safety Report 15923480 (Version 2)
Quarter: 2019Q3

REPORT INFORMATION
  Report Type: Spontaneous
  Country: DE (occurrence: DE)
  Receive Date: 20190206
  Receipt Date: 20190710
  Transmission Date: 20191004
  Serious: Yes (Hospitalization)
  Sender: FDA-Public Use
  Company Number: DE-ACCORD-105972

PATIENT
  Age: 56 Year
  Sex: Female

DRUGS (8)
  1. CISPLATIN. [Suspect]
     Active Substance: CISPLATIN
     Indication: PRODUCT USED FOR UNKNOWN INDICATION
     Dosage: NK MG, NK
  2. TORASEMIDE [Concomitant]
     Active Substance: TORSEMIDE
     Dosage: 5 MG, 1-0-0-0
  3. FOLIC ACID. [Concomitant]
     Active Substance: FOLIC ACID
     Dosage: 5 MG, 1-0-0-0
  4. LEVOTHYROXINE. [Concomitant]
     Active Substance: LEVOTHYROXINE
     Dosage: 125 MICROGRAM, 0-1-0-0
  5. VALSARTAN. [Concomitant]
     Active Substance: VALSARTAN
     Dosage: 40 MG, 0-1-0-0
  6. INSULIN HUMAN/INSULIN HUMAN BIOSYNTHETIC/INSULIN HUMAN INJECTION/ISOPH/INSULIN HUMAN ZINC SUSPENSION [Concomitant]
     Dosage: 2 IU, WITH BZ OVER 150 MG
  7. GLIMEPIRIDE. [Concomitant]
     Active Substance: GLIMEPIRIDE
     Dosage: NK MG, 1-0-1-0
  8. GEMCITABINE/GEMCITABINE HYDROCHLORIDE [Suspect]
     Active Substance: GEMCITABINE\GEMCITABINE HYDROCHLORIDE
     Indication: PRODUCT USED FOR UNKNOWN INDICATION
     Dosage: NK MG, NK

REACTIONS (5)
  - Chest pain [Unknown]
  - Cold sweat [Unknown]
  - Abdominal pain [Unknown]
  - Diarrhoea [Unknown]
  - Dyspnoea [Unknown]
